FAERS Safety Report 25233898 (Version 1)
Quarter: 2025Q2

REPORT INFORMATION
  Report Type: Spontaneous
  Country: US (occurrence: US)
  Receive Date: 20250424
  Receipt Date: 20250424
  Transmission Date: 20250717
  Serious: Yes (Other)
  Sender: AMGEN
  Company Number: US-AMGEN-USASP2025076866

PATIENT
  Age: 11 Year
  Sex: Female

DRUGS (4)
  1. ROMIPLOSTIM [Suspect]
     Active Substance: ROMIPLOSTIM
     Indication: Immune thrombocytopenia
     Route: 065
  2. DEXAMETHASONE [Concomitant]
     Active Substance: DEXAMETHASONE
     Indication: Mucocutaneous haemorrhage
     Route: 065
  3. Immunoglobulin [Concomitant]
     Route: 040
  4. ACETAZOLAMIDE [Concomitant]
     Active Substance: ACETAZOLAMIDE
     Indication: Papilloedema
     Route: 065

REACTIONS (5)
  - Cerebral venous sinus thrombosis [Recovering/Resolving]
  - Papilloedema [Unknown]
  - Thrombocytopenia [Unknown]
  - Therapy partial responder [Unknown]
  - COVID-19 [Unknown]
